FAERS Safety Report 5811093-9 (Version None)
Quarter: 2008Q3

REPORT INFORMATION
  Report Type: 
  Country: None (occurrence: None)
  Receive Date: 20080710
  Receipt Date: 20080701
  Transmission Date: 20090109
  Serious: Yes (Other)
  Sender: FDA-Public Use
  Company Number: 2007-03663

PATIENT
  Age: 57 Year
  Sex: Male
  Weight: 70 kg

DRUGS (4)
  1. VELCADE [Suspect]
     Indication: MULTIPLE MYELOMA
     Dosage: 2.20 MG, INTRAVENOUS, 1.7 MG, INTRAVENOUS
     Route: 042
     Dates: start: 20071023, end: 20071102
  2. VELCADE [Suspect]
     Indication: MULTIPLE MYELOMA
     Dosage: 2.20 MG, INTRAVENOUS, 1.7 MG, INTRAVENOUS
     Route: 042
     Dates: start: 20071120, end: 20071130
  3. ITRACONAZOLE [Suspect]
     Indication: PROPHYLAXIS
     Dosage: 200 MG, ORAL
     Route: 048
     Dates: start: 20071023, end: 20071109
  4. BAKTAR(SULFAMETHOXAZOLE, TRIMETHOPRIM) TABLET [Suspect]
     Indication: PROPHYLAXIS
     Dosage: 4.00 DF, ORAL
     Route: 048
     Dates: start: 20071023, end: 20071109

REACTIONS (11)
  - BLOOD LACTATE DEHYDROGENASE INCREASED [None]
  - DYSPNOEA [None]
  - HEPATIC FUNCTION ABNORMAL [None]
  - NEUTROPHIL COUNT DECREASED [None]
  - OXYGEN SATURATION DECREASED [None]
  - PLATELET COUNT DECREASED [None]
  - PURPURA [None]
  - PYREXIA [None]
  - RASH [None]
  - VASCULAR PURPURA [None]
  - WHITE BLOOD CELL COUNT DECREASED [None]
